FAERS Safety Report 4282067-7 (Version None)
Quarter: 2004Q1

REPORT INFORMATION
  Report Type: 
  Country: None (occurrence: None)
  Receive Date: 20040130
  Receipt Date: 20021216
  Transmission Date: 20041129
  Serious: No
  Sender: FDA-Public Use
  Company Number: US-BRISTOL-MYERS SQUIBB COMPANY-12139895

PATIENT
  Age: 48 Year
  Sex: Male
  Weight: 79 kg

DRUGS (4)
  1. DESYREL [Suspect]
     Indication: SLEEP DISORDER
     Dosage: STARTED AT 100 MG 5 YRS. AGO; DECREASED DOSE FROM 75 MG TO 25 MG, 72 HRS. AGO.
     Route: 048
     Dates: end: 20021201
  2. ZANTAC [Concomitant]
  3. ASPIRIN [Concomitant]
  4. MULTI-VITAMIN [Concomitant]

REACTIONS (7)
  - ABDOMINAL DISCOMFORT [None]
  - ANOREXIA [None]
  - ANXIETY [None]
  - DEFAECATION URGENCY [None]
  - ERECTILE DYSFUNCTION [None]
  - HEART RATE INCREASED [None]
  - NERVOUSNESS [None]
